FAERS Safety Report 10136424 (Version 7)
Quarter: 2014Q3

REPORT INFORMATION
  Report Type: Spontaneous
  Country: US (occurrence: None)
  Receive Date: 20140425
  Receipt Date: 20140827
  Transmission Date: 20150326
  Serious: Yes (Hospitalization, Other)
  Sender: FDA-Public Use
  Company Number: UTC-047227

PATIENT
  Age: 77 Year
  Sex: Female
  Weight: 54.4 kg

DRUGS (5)
  1. ADCIRCA [Suspect]
     Active Substance: TADALAFIL
     Indication: PRODUCT USED FOR UNKNOWN INDICATION
  2. REMODULIN [Suspect]
     Active Substance: TREPROSTINIL
     Indication: COR PULMONALE CHRONIC
     Dosage: 0.057 UG/KG, CONTINUING, IV DRIP?
     Route: 041
     Dates: start: 20020621
  3. WARFARIN (WARFARIN) [Concomitant]
     Active Substance: WARFARIN
  4. FLOLAN (EPOPROSTENOL) [Concomitant]
  5. LETAIRIS [Suspect]
     Active Substance: AMBRISENTAN
     Indication: PRODUCT USED FOR UNKNOWN INDICATION
     Route: 048
     Dates: start: 20070817

REACTIONS (13)
  - Fluid retention [None]
  - Hearing impaired [None]
  - Lethargy [None]
  - Diarrhoea [None]
  - Complication of device insertion [None]
  - Upper gastrointestinal haemorrhage [None]
  - Swollen tongue [None]
  - Tooth disorder [None]
  - Melaena [None]
  - Oral pain [None]
  - Haemoglobin decreased [None]
  - Heart valve replacement [None]
  - Pleural effusion [None]

NARRATIVE: CASE EVENT DATE: 20140410
